FAERS Safety Report 4932483-2 (Version None)
Quarter: 2006Q1

REPORT INFORMATION
  Report Type: 
  Country: None (occurrence: None)
  Receive Date: 20060227
  Receipt Date: 20060216
  Transmission Date: 20060701
  Serious: Yes (Other)
  Sender: FDA-Public Use
  Company Number: HQWYE054323AUG05

PATIENT
  Age: 43 Year
  Sex: Male

DRUGS (4)
  1. RAPAMUNE [Suspect]
     Indication: PROPHYLAXIS AGAINST TRANSPLANT REJECTION
     Dosage: 5 MG 1X PER 1 DAY; ORAL
     Route: 048
     Dates: start: 20041107, end: 20050818
  2. ZENAPAX [Concomitant]
  3. MYCOPHENOLATE MOFETIL [Concomitant]
  4. CORTICOSTEROIDS [Concomitant]

REACTIONS (4)
  - DRUG INEFFECTIVE [None]
  - KIDNEY TRANSPLANT REJECTION [None]
  - LYMPHOCELE [None]
  - PERINEPHRIC COLLECTION [None]
